FAERS Safety Report 18527796 (Version 4)
Quarter: 2021Q2

REPORT INFORMATION
  Report Type: Report from Study
  Country: CA (occurrence: CA)
  Receive Date: 20201120
  Receipt Date: 20210604
  Transmission Date: 20210717
  Serious: Yes (Other)
  Sender: FDA-Public Use
  Company Number: CA-TAKEDA-2018TUS018446

PATIENT
  Age: 73 Year
  Sex: Male

DRUGS (17)
  1. ALLOPURINOL. [Concomitant]
     Active Substance: ALLOPURINOL
     Dosage: 100 MILLIGRAM, BID
  2. VEDOLIZUMAB [Suspect]
     Active Substance: VEDOLIZUMAB
     Dosage: 300 MILLIGRAM, Q4WEEKS
     Route: 042
  3. IMURAN [Concomitant]
     Active Substance: AZATHIOPRINE
     Dosage: UNK
  4. ASA [Concomitant]
     Active Substance: ASPIRIN
     Dosage: 81 MILLIGRAM
  5. VEDOLIZUMAB [Suspect]
     Active Substance: VEDOLIZUMAB
     Dosage: 300 MILLIGRAM, Q4WEEKS
     Route: 042
     Dates: start: 20190809
  6. VEDOLIZUMAB [Suspect]
     Active Substance: VEDOLIZUMAB
     Dosage: 300 MILLIGRAM, Q4WEEKS
     Route: 042
  7. PANTOLOC [Suspect]
     Active Substance: PANTOPRAZOLE SODIUM
     Indication: PRODUCT USED FOR UNKNOWN INDICATION
     Dosage: 40 MILLIGRAM
     Route: 065
     Dates: start: 20151122
  8. IRBESARTAN. [Concomitant]
     Active Substance: IRBESARTAN
     Dosage: 150 MILLIGRAM
  9. VEDOLIZUMAB [Suspect]
     Active Substance: VEDOLIZUMAB
     Dosage: 300 MILLIGRAM, Q4WEEKS
     Route: 042
  10. MEZAVANT [Concomitant]
     Active Substance: MESALAMINE
     Dosage: 1.2 GRAM, BID
  11. VITAMIN D NOS [Concomitant]
     Active Substance: VITAMIN D NOS
     Dosage: UNK
  12. PREDNISONE. [Concomitant]
     Active Substance: PREDNISONE
     Dosage: 35 MILLIGRAM
  13. CALCIUM [Concomitant]
     Active Substance: CALCIUM
     Dosage: UNK
  14. ATORVASTATIN [Concomitant]
     Active Substance: ATORVASTATIN
     Dosage: 40 MILLIGRAM, BID
  15. VEDOLIZUMAB [Suspect]
     Active Substance: VEDOLIZUMAB
     Indication: CROHN^S DISEASE
     Dosage: 300 MILLIGRAM
     Route: 042
     Dates: start: 20170323
  16. VEDOLIZUMAB [Suspect]
     Active Substance: VEDOLIZUMAB
     Dosage: 300 MILLIGRAM, Q4WEEKS
     Route: 042
  17. VEDOLIZUMAB [Suspect]
     Active Substance: VEDOLIZUMAB
     Dosage: 300 MILLIGRAM, Q4WEEKS
     Route: 042

REACTIONS (7)
  - Arthralgia [Unknown]
  - Off label use [Unknown]
  - Stent placement [Unknown]
  - Nasopharyngitis [Unknown]
  - Bronchitis [Unknown]
  - Hip arthroplasty [Unknown]
  - Dyspnoea [Unknown]

NARRATIVE: CASE EVENT DATE: 20180429
